FAERS Safety Report 11204132 (Version 1)
Quarter: 2015Q2

REPORT INFORMATION
  Report Type: Spontaneous
  Country: US (occurrence: US)
  Receive Date: 20150619
  Receipt Date: 20150619
  Transmission Date: 20150821
  Serious: No
  Sender: FDA-Public Use
  Company Number: US-TEVA-567074USA

PATIENT

DRUGS (1)
  1. PROGLYCEM SUSPENSION [Suspect]
     Active Substance: DIAZOXIDE
     Route: 065

REACTIONS (1)
  - Generalised oedema [Unknown]
